FAERS Safety Report 8743159 (Version 2)
Quarter: 2012Q4

REPORT INFORMATION
  Report Type: 
  Country: GB (occurrence: GB)
  Receive Date: 20120824
  Receipt Date: 20120912
  Transmission Date: 20130627
  Serious: Yes (Other)
  Sender: FDA-Public Use
  Company Number: GB-B.I. PHARMACEUTICALS,INC./RIDGEFIELD-2012-UK-01096UK

PATIENT
  Age: 83 Year
  Sex: Male

DRUGS (7)
  1. PRADAXA [Suspect]
     Indication: ATRIAL FIBRILLATION
     Dosage: 220 mg
     Route: 048
     Dates: start: 20120607, end: 20120821
  2. RAMIPRIL [Concomitant]
     Indication: BLOOD PRESSURE INCREASED
     Dosage: 10 mg
     Route: 048
  3. METFORMIN [Concomitant]
     Indication: DIABETES MELLITUS
     Dosage: 2 g
     Route: 048
  4. DOXAZOSIN [Concomitant]
     Indication: BLOOD PRESSURE INCREASED
     Dosage: 8 mg
     Route: 048
  5. LISINOPRIL [Concomitant]
  6. AMLODIPINE [Concomitant]
  7. BISOPROLOL [Concomitant]
     Indication: ATRIAL FIBRILLATION
     Dosage: 1.25 mg
     Route: 048

REACTIONS (5)
  - Deep vein thrombosis [Not Recovered/Not Resolved]
  - Cellulitis [Not Recovered/Not Resolved]
  - Pain in extremity [Not Recovered/Not Resolved]
  - Joint swelling [Not Recovered/Not Resolved]
  - Oedema peripheral [Not Recovered/Not Resolved]
